FAERS Safety Report 6840910-9 (Version None)
Quarter: 2010Q3

REPORT INFORMATION
  Report Type: 
  Country: None (occurrence: None)
  Receive Date: 20100714
  Receipt Date: 20100707
  Transmission Date: 20110219
  Serious: Yes (Hospitalization)
  Sender: FDA-Public Use
  Company Number: BR-ABBOTT-10P-020-0650418-00

PATIENT
  Sex: Male
  Weight: 68 kg

DRUGS (3)
  1. HUMIRA [Suspect]
     Indication: ANKYLOSING SPONDYLITIS
     Route: 058
     Dates: start: 20100303, end: 20100603
  2. PRELONE [Concomitant]
     Indication: ANKYLOSING SPONDYLITIS
     Dosage: FORM STRENGTH: 5 MG
     Route: 048
     Dates: start: 20100201
  3. PANTOCAL [Concomitant]
     Indication: GASTRIC DISORDER
     Dosage: FORM STRENGTH: 40 MG
     Route: 048
     Dates: start: 20100201

REACTIONS (4)
  - BLOOD CHOLESTEROL INCREASED [None]
  - DISEASE RECURRENCE [None]
  - NEPHROLITHIASIS [None]
  - URINARY TRACT INFECTION [None]
